FAERS Safety Report 16460979 (Version 1)
Quarter: 2019Q2

REPORT INFORMATION
  Report Type: Report from Study
  Country: US (occurrence: US)
  Receive Date: 20190620
  Receipt Date: 20190620
  Transmission Date: 20190711
  Serious: Yes (Hospitalization, Other)
  Sender: FDA-Public Use
  Company Number: PHHY2019US138117

PATIENT
  Age: 54 Year
  Sex: Male
  Weight: 64 kg

DRUGS (8)
  1. AZITHROMYCIN ANHYDROUS. [Concomitant]
     Active Substance: AZITHROMYCIN ANHYDROUS
     Indication: MYCOBACTERIUM AVIUM COMPLEX INFECTION
     Dosage: 500 MG, UNK
     Route: 048
     Dates: start: 20190201, end: 201904
  2. ESCITALOPRAM [Concomitant]
     Active Substance: ESCITALOPRAM OXALATE
     Indication: PRODUCT USED FOR UNKNOWN INDICATION
     Dosage: 10 MG, QD
     Route: 065
     Dates: start: 20190403
  3. AMIKACIN. [Concomitant]
     Active Substance: AMIKACIN
     Indication: MYCOBACTERIUM AVIUM COMPLEX INFECTION
     Dosage: 590 MG, UNK (LIPOSOMAL INHALED)
     Route: 055
     Dates: start: 20190501
  4. ERAVACYCLINE. [Concomitant]
     Active Substance: ERAVACYCLINE
     Dosage: UNK
     Route: 042
     Dates: start: 20190509
  5. AZITHROMYCIN ANHYDROUS. [Concomitant]
     Active Substance: AZITHROMYCIN ANHYDROUS
     Dosage: UNK
     Route: 048
     Dates: start: 201905
  6. IMIPENEM AND CILASTATIN [Concomitant]
     Active Substance: CILASTATIN SODIUM\IMIPENEM
     Indication: PRODUCT USED FOR UNKNOWN INDICATION
     Dosage: UNK
     Route: 042
     Dates: start: 201901, end: 201904
  7. LAMPRENE [Suspect]
     Active Substance: CLOFAZIMINE
     Indication: MYCOBACTERIUM ABSCESSUS INFECTION
     Dosage: 100 MG, QD
     Route: 048
     Dates: start: 20190501, end: 20190529
  8. ERAVACYCLINE. [Concomitant]
     Active Substance: ERAVACYCLINE
     Indication: MYCOBACTERIUM AVIUM COMPLEX INFECTION
     Dosage: 500 MG, QD
     Route: 042
     Dates: start: 201901, end: 201904

REACTIONS (11)
  - Gastrointestinal oedema [Unknown]
  - Oesophageal candidiasis [Unknown]
  - Hepatic steatosis [Recovering/Resolving]
  - Diarrhoea [Unknown]
  - Intestinal haemorrhage [Unknown]
  - Portal vein thrombosis [Recovering/Resolving]
  - Duodenitis [Recovering/Resolving]
  - Nausea [Unknown]
  - Vomiting [Unknown]
  - Oesophageal stenosis [Unknown]
  - Fatigue [Unknown]

NARRATIVE: CASE EVENT DATE: 20190525
